FAERS Safety Report 8719478 (Version 3)
Quarter: 2015Q1

REPORT INFORMATION
  Report Type: Spontaneous
  Country: US (occurrence: US)
  Receive Date: 20120813
  Receipt Date: 20150224
  Transmission Date: 20150721
  Serious: Yes (Life-Threatening, Hospitalization, Congenital Anomaly, Other)
  Sender: FDA-Public Use
  Company Number: US-ELI_LILLY_AND_COMPANY-US201208000771

PATIENT
  Age: 5 Month

DRUGS (10)
  1. PRENATAL                           /00231801/ [Concomitant]
     Route: 064
  2. NASONEX [Concomitant]
     Active Substance: MOMETASONE FUROATE
     Route: 064
  3. PROZAC [Suspect]
     Active Substance: FLUOXETINE HYDROCHLORIDE
     Indication: DEPRESSION
     Dosage: 10 MG, UNKNOWN
     Route: 064
  4. NASONEX [Concomitant]
     Active Substance: MOMETASONE FUROATE
     Route: 064
  5. XANAX [Concomitant]
     Active Substance: ALPRAZOLAM
     Route: 064
  6. PROZAC [Suspect]
     Active Substance: FLUOXETINE HYDROCHLORIDE
     Indication: DEPRESSION
     Dosage: 10 MG, UNKNOWN
     Route: 064
  7. FERROUS SULFATE [Concomitant]
     Active Substance: FERROUS SULFATE\FERROUS SULFATE, DRIED
     Route: 064
  8. FERROUS SULFATE [Concomitant]
     Active Substance: FERROUS SULFATE\FERROUS SULFATE, DRIED
     Route: 064
  9. XANAX [Concomitant]
     Active Substance: ALPRAZOLAM
     Route: 064
  10. PRENATAL                           /00231801/ [Concomitant]
     Route: 064

REACTIONS (24)
  - Double outlet right ventricle [Unknown]
  - Pulmonary valve stenosis [Unknown]
  - Pulmonary artery stenosis [Unknown]
  - Aortic aneurysm [Unknown]
  - Cardiac failure congestive [Unknown]
  - Thrombocytopenia [Unknown]
  - Patent ductus arteriosus [Unknown]
  - Respiratory distress [Recovered/Resolved]
  - Apgar score low [Recovered/Resolved]
  - Right ventricular dysfunction [Unknown]
  - Atrial septal defect [Unknown]
  - Aortic valve incompetence [Unknown]
  - Truncus arteriosus persistent [Unknown]
  - Right ventricular hypertrophy [Unknown]
  - Acquired cardiac septal defect [Unknown]
  - Ventricular septal defect [Unknown]
  - Tricuspid valve incompetence [Unknown]
  - Left ventricular dysfunction [Unknown]
  - Aortic valve stenosis [Unknown]
  - Arrhythmia supraventricular [Unknown]
  - Factor V Leiden mutation [Unknown]
  - Choledochal cyst [Recovered/Resolved]
  - Left ventricular hypertrophy [Unknown]
  - Foetal exposure during pregnancy [Recovered/Resolved]

NARRATIVE: CASE EVENT DATE: 20010606
